FAERS Safety Report 5760232-7 (Version None)
Quarter: 2008Q2

REPORT INFORMATION
  Report Type: 
  Country: None (occurrence: None)
  Receive Date: 20080602
  Receipt Date: 20080523
  Transmission Date: 20081010
  Serious: Yes (Hospitalization)
  Sender: FDA-Public Use
  Company Number: CHPA2008US08761

PATIENT
  Sex: Female

DRUGS (2)
  1. THERAFLU NIGHTTIME SEVERE COLD WARMING SYRUP (NCH)(PARACETAMOL,DIPHENH [Suspect]
     Indication: COUGH
     Dosage: 30 ML, QHS
     Dates: start: 20080516, end: 20080516
  2. THERAFLU NIGHTTIME SEVERE COLD WARMING SYRUP (NCH)(PARACETAMOL,DIPHENH [Suspect]
     Indication: NASOPHARYNGITIS
     Dosage: 30 ML, QHS
     Dates: start: 20080516, end: 20080516

REACTIONS (2)
  - CEREBROVASCULAR ACCIDENT [None]
  - HEMIPLEGIA [None]
